FAERS Safety Report 22039995 (Version 7)
Quarter: 2025Q2

REPORT INFORMATION
  Report Type: Spontaneous
  Country: US (occurrence: US)
  Receive Date: 20230227
  Receipt Date: 20250530
  Transmission Date: 20250716
  Serious: Yes (Other)
  Sender: PFIZER
  Company Number: US-PFIZER INC-2018135197

PATIENT
  Age: 68 Year
  Sex: Female
  Weight: 76 kg

DRUGS (17)
  1. XELJANZ XR [Suspect]
     Active Substance: TOFACITINIB CITRATE
     Indication: Rheumatoid arthritis
     Dosage: 11 MG, 1X/DAY
     Route: 048
     Dates: start: 2017
  2. XELJANZ XR [Suspect]
     Active Substance: TOFACITINIB CITRATE
     Indication: Osteoarthritis
     Dosage: TAKE 1 BY MOUTH DAILY AS DIRECTED
     Route: 048
     Dates: start: 2018
  3. DICLOFENAC [Suspect]
     Active Substance: DICLOFENAC
     Dosage: 1 TABLET OF ORAL DICLOFENAC 75 MG DAILY/75 MG TAKE 1 TABLET BY MOUTH EVERY DAY TAB
     Route: 048
  4. LEFLUNOMIDE [Suspect]
     Active Substance: LEFLUNOMIDE
     Indication: Rheumatoid arthritis
     Dosage: UNK UNK, 1X/DAY
     Route: 048
  5. LEFLUNOMIDE [Suspect]
     Active Substance: LEFLUNOMIDE
     Dosage: 20 MG QD/TAKE 1 TABLET BY MOUTH EVERY DAY
  6. LOSARTAN POTASSIUM [Suspect]
     Active Substance: LOSARTAN POTASSIUM
  7. TRAMADOL [Suspect]
     Active Substance: TRAMADOL
     Dosage: 50 MG T.I.D.
  8. TRAMADOL [Suspect]
     Active Substance: TRAMADOL
  9. ACETAMINOPHEN [Concomitant]
     Active Substance: ACETAMINOPHEN
  10. DICLOFENAC SODIUM [Concomitant]
     Active Substance: DICLOFENAC SODIUM
     Dosage: APPLY (2G) BY TOPICAL ROUTE 2 TIMES EVERY DAY TO THE AFFECTED AREA(S)
     Route: 061
  11. LEVOTHYROXINE [Concomitant]
     Active Substance: LEVOTHYROXINE
     Dosage: TAKE 1 TABLET BY ORAL ROUTE EVERY DAY
     Route: 048
  12. LOSARTAN [Concomitant]
     Active Substance: LOSARTAN
     Dosage: TAKE 1 TABLET BY ORAL ROUTE EVERY DAY
     Route: 048
  13. OMEPRAZOLE [Concomitant]
     Active Substance: OMEPRAZOLE
     Dosage: TAKE 1 CAPSULE BY ORAL ROUTE EVERY DAY BEFORE A MEAL
     Route: 048
  14. ROSUVASTATIN [Concomitant]
     Active Substance: ROSUVASTATIN
     Dosage: TAKE 1 TABLET BY ORAL ROUTE EVERY DAY
     Route: 048
  15. STOOL SOFTENER (DOCUSATE) [Concomitant]
     Active Substance: DOCUSATE
     Route: 048
  16. TRIAMTERENE AND HYDROCHLOROTHIAZIDE [Concomitant]
     Active Substance: HYDROCHLOROTHIAZIDE\TRIAMTERENE
     Dosage: TAKE 1 TABLET BY ORAL ROUTE EVERY DAY
     Route: 048
  17. VITAMIN D3 [Concomitant]
     Active Substance: CHOLECALCIFEROL
     Dosage: TAKE 3 CAPSULE BY ORAL ROUTE EVERY DAY
     Route: 048

REACTIONS (60)
  - Deafness [Unknown]
  - Spondylitis [Not Recovered/Not Resolved]
  - Condition aggravated [Not Recovered/Not Resolved]
  - Arthropathy [Unknown]
  - Hernia [Unknown]
  - Spinal operation [Unknown]
  - Spinal fusion surgery [Unknown]
  - Intervertebral disc operation [Unknown]
  - Hip arthroplasty [Unknown]
  - Spinal laminectomy [Unknown]
  - Wrist surgery [Unknown]
  - Carpal tunnel decompression [Unknown]
  - Spinal fusion surgery [Unknown]
  - Synovial cyst [Unknown]
  - Bursitis [Unknown]
  - Abdominoplasty [Unknown]
  - Intervertebral disc disorder [Unknown]
  - Intervertebral disc degeneration [Unknown]
  - Nerve compression [Not Recovered/Not Resolved]
  - Limb discomfort [Unknown]
  - Inflammation [Unknown]
  - Pain in extremity [Unknown]
  - Back pain [Unknown]
  - Headache [Not Recovered/Not Resolved]
  - Hypersensitivity [Not Recovered/Not Resolved]
  - Neck pain [Unknown]
  - Joint swelling [Unknown]
  - Dry mouth [Unknown]
  - Tinnitus [Unknown]
  - Headache [Unknown]
  - Spinal osteoarthritis [Unknown]
  - Stenosis [Unknown]
  - Bone marrow oedema [Unknown]
  - Bone cyst [Unknown]
  - Osteoarthritis [Unknown]
  - Gastrooesophageal reflux disease [Unknown]
  - Paraesthesia [Unknown]
  - Arthralgia [Unknown]
  - Pain in jaw [Unknown]
  - Gait disturbance [Unknown]
  - Arthralgia [Not Recovered/Not Resolved]
  - Musculoskeletal stiffness [Unknown]
  - Arthropathy [Unknown]
  - Osteoarthritis [Unknown]
  - Spinal stenosis [Unknown]
  - Vitamin D deficiency [Unknown]
  - Bone disorder [Unknown]
  - Neck pain [Unknown]
  - Blood creatinine increased [Unknown]
  - Hypoaesthesia [Unknown]
  - Paraesthesia [Unknown]
  - Arthralgia [Unknown]
  - Musculoskeletal discomfort [Unknown]
  - Tachycardia [Unknown]
  - Tenderness [Unknown]
  - Inflammatory marker increased [Unknown]
  - Greater trochanteric pain syndrome [Unknown]
  - Back disorder [Unknown]
  - Thyroid disorder [Unknown]
  - Scapholunate dissociation [Unknown]

NARRATIVE: CASE EVENT DATE: 20190226
